FAERS Safety Report 5848314-2 (Version None)
Quarter: 2008Q3

REPORT INFORMATION
  Report Type: 
  Country: None (occurrence: None)
  Receive Date: 20080818
  Receipt Date: 20080808
  Transmission Date: 20090109
  Serious: Yes (Hospitalization)
  Sender: FDA-Public Use
  Company Number: FR-MERCK-0808FRA00016

PATIENT
  Age: 76 Year
  Sex: Female

DRUGS (4)
  1. ZOCOR [Suspect]
     Indication: DYSLIPIDAEMIA
     Route: 048
     Dates: start: 20030101
  2. CLOPIDOGREL BISULFATE [Suspect]
     Indication: THROMBOSIS PROPHYLAXIS
     Route: 048
     Dates: start: 20030101, end: 20080227
  3. CLOPIDOGREL BISULFATE [Suspect]
     Route: 048
     Dates: start: 20080307, end: 20080611
  4. ACEBUTOLOL [Concomitant]
     Indication: HYPERTENSION
     Route: 048

REACTIONS (2)
  - ANAEMIA [None]
  - MELAENA [None]
